FAERS Safety Report 10051664 (Version 1)
Quarter: 2014Q2

REPORT INFORMATION
  Report Type: Spontaneous
  Country: IR (occurrence: IR)
  Receive Date: 20140401
  Receipt Date: 20140401
  Transmission Date: 20141212
  Serious: Yes (Hospitalization)
  Sender: FDA-Public Use
  Company Number: IR-MYLANLABS-2014S1006753

PATIENT
  Age: 17 Year
  Sex: Male
  Weight: 82 kg

DRUGS (7)
  1. FENTANYL [Suspect]
     Indication: PREMEDICATION
     Route: 042
  2. THIOPENTAL SODIUM [Suspect]
     Indication: INDUCTION OF ANAESTHESIA
     Dosage: 5 MG/KG
     Route: 065
  3. ATRACURIUM BESILATE [Suspect]
     Indication: INDUCTION AND MAINTENANCE OF ANAESTHESIA
     Dosage: 0.5 MG/KG
     Route: 065
  4. HALOTHANE [Suspect]
     Indication: MAINTENANCE OF ANAESTHESIA
     Dosage: 0.8%
     Route: 065
  5. LACTATED RINGERS [Concomitant]
     Dosage: RINGER^S LACTATE
     Route: 065
  6. NEOSTIGMINE [Concomitant]
     Indication: ANAESTHESIA REVERSAL
     Route: 040
  7. ATROPINE [Concomitant]
     Indication: ANAESTHESIA REVERSAL
     Route: 040

REACTIONS (1)
  - Pulmonary oedema [Recovered/Resolved]
